FAERS Safety Report 9204405 (Version 1)
Quarter: 2013Q1

REPORT INFORMATION
  Report Type: Spontaneous
  Country: US (occurrence: None)
  Receive Date: 20120709
  Receipt Date: 20120709
  Transmission Date: 20140127
  Serious: No
  Sender: FDA-Public Use
  Company Number: 2012HGS-003422

PATIENT
  Age: 46 Year
  Sex: Male
  Weight: 113.4 kg

DRUGS (13)
  1. BENLYSTA [Suspect]
     Indication: SYSTEMIC LUPUS ERYTHEMATOSUS
     Dosage: 1 IN 2 WK, INTRAVENOUS DRIP
     Route: 041
     Dates: end: 20120420
  2. PROCARDIA XL (NIFEDIPINE) (NIFEDIPINE) [Concomitant]
  3. VASOTEC (ENALAPRIL MALEATE) (ENALAPRIL MALEATE) [Concomitant]
  4. PREDNISONE (PREDNISONE) (PREDNISONE) [Concomitant]
  5. CELEBREX (CELECOXIB) (CELECOXIB) [Concomitant]
  6. WARFARIN (WARFARIN) (WARFARIN) [Concomitant]
  7. NEXIUM (ESOMEPRAZOLE MAGNESIUM) (ESOMEPRAZOLE MAGNESIUM) [Concomitant]
  8. MULTIVITAMIN (VIGRAN) (ERGOCALCIFEROL, ASCORBIC ACID, PYRIDOXINE HYDROCHLORIDE, THIAMINE HYDROCHLORIDE, RETINOL, RIBOFLAVIN, NICOTINAMIDE, CALCIUM PANTOTHENATE) [Concomitant]
  9. CALCIUM (CALCIUM) (CALCIUM) [Concomitant]
  10. FOSAMAX (ALENDRONATE SODIUM) (ALENDRONATE SODIUM) [Concomitant]
  11. FOLIC ACID (FOLIC ACID) (FOLIC ACID) [Concomitant]
  12. MEDROL (METHYLPREDNISOLONE) (METHYLPREDNISOLONE) [Concomitant]
  13. PLAQUENIL (HYDROXYCHLOROQUINE PHOSPHATE) (HYDROXYCHLOROQUINE PHOSPHATE) [Concomitant]

REACTIONS (6)
  - Systemic lupus erythematosus [None]
  - Condition aggravated [None]
  - Arthralgia [None]
  - Fatigue [None]
  - Myalgia [None]
  - Insomnia [None]
